FAERS Safety Report 17697410 (Version 1)
Quarter: 2020Q2

REPORT INFORMATION
  Report Type: Spontaneous
  Country: US (occurrence: US)
  Receive Date: 20200422
  Receipt Date: 20200422
  Transmission Date: 20200714
  Serious: No
  Sender: FDA-Public Use
  Company Number: None

PATIENT
  Age: 77 Year
  Sex: Male

DRUGS (1)
  1. OTEZLA [Suspect]
     Active Substance: APREMILAST
     Indication: PSORIASIS
     Dosage: OTHER DOSE:1 TABLET ;?AS DIRECTED
     Route: 048
     Dates: start: 201912

REACTIONS (3)
  - Blood glucose decreased [None]
  - Hepatic cancer [None]
  - Dyspnoea [None]
